FAERS Safety Report 4703863-5 (Version None)
Quarter: 2005Q2

REPORT INFORMATION
  Report Type: 
  Country: None (occurrence: None)
  Receive Date: 20050630
  Receipt Date: 20050525
  Transmission Date: 20051028
  Serious: No
  Sender: FDA-Public Use
  Company Number: US-GLAXOSMITHKLINE-A0560282A

PATIENT
  Age: 88 Year
  Sex: Male

DRUGS (8)
  1. FLOVENT [Suspect]
     Indication: DRUG USE FOR UNKNOWN INDICATION
     Dosage: 2PUFF TWICE PER DAY
     Route: 055
     Dates: start: 20050428
  2. POLYVINYL ALCOHOL [Concomitant]
     Route: 047
     Dates: start: 20050516
  3. SARNA [Concomitant]
     Indication: PRURITUS
     Route: 061
     Dates: start: 20050407
  4. MAGNESIUM CITRATE [Concomitant]
     Indication: CONSTIPATION
     Route: 048
     Dates: start: 20050323
  5. BISACODYL [Concomitant]
     Indication: CONSTIPATION
     Route: 048
     Dates: start: 20050316
  6. BISACODYL [Concomitant]
     Dates: start: 20050316
  7. DETROL LA [Concomitant]
     Indication: BLADDER DISORDER
     Dosage: 4MG PER DAY
     Route: 048
     Dates: start: 20041006
  8. FLOVENT [Concomitant]
     Dosage: 2PUFF TWICE PER DAY
     Route: 055
     Dates: start: 20041214

REACTIONS (1)
  - RHINORRHOEA [None]
